FAERS Safety Report 5802200-2 (Version None)
Quarter: 2008Q3

REPORT INFORMATION
  Report Type: 
  Country: None (occurrence: None)
  Receive Date: 20080707
  Receipt Date: 20080625
  Transmission Date: 20090109
  Serious: Yes (Hospitalization)
  Sender: FDA-Public Use
  Company Number: FR-AVENTIS-200812412FR

PATIENT
  Age: 47 Year
  Sex: Male

DRUGS (5)
  1. RIFINAH [Suspect]
     Indication: DRUG USE FOR UNKNOWN INDICATION
     Route: 048
     Dates: start: 20070523, end: 20070905
  2. ACOMPLIA [Suspect]
     Indication: OBESITY
     Route: 048
     Dates: end: 20070801
  3. ACOMPLIA [Suspect]
     Route: 048
     Dates: end: 20070801
  4. AMARYL [Concomitant]
     Indication: DRUG USE FOR UNKNOWN INDICATION
     Route: 048
  5. ZANIDIP [Concomitant]
     Indication: DRUG USE FOR UNKNOWN INDICATION
     Route: 048

REACTIONS (5)
  - ASTHENIA [None]
  - CONFUSIONAL STATE [None]
  - DYSKINESIA [None]
  - MALAISE [None]
  - VISUAL IMPAIRMENT [None]
